FAERS Safety Report 20746756 (Version 1)
Quarter: 2022Q2

REPORT INFORMATION
  Report Type: Spontaneous
  Country: FR (occurrence: FR)
  Receive Date: 20220425
  Receipt Date: 20220425
  Transmission Date: 20220721
  Serious: Yes (Hospitalization)
  Sender: FDA-Public Use
  Company Number: None

PATIENT
  Age: 85 Year
  Sex: Male
  Weight: 107 kg

DRUGS (14)
  1. DOXYCYCLINE [Suspect]
     Active Substance: DOXYCYCLINE
     Indication: Intervertebral discitis
     Dosage: DURATION 42 DAYS
     Route: 048
     Dates: start: 20211209, end: 20220120
  2. RIFAMPIN [Suspect]
     Active Substance: RIFAMPIN
     Indication: Intervertebral discitis
     Dosage: DURATION 42 DAYS
     Route: 048
     Dates: start: 20211209, end: 20220120
  3. OXYCODONE [Suspect]
     Active Substance: OXYCODONE
     Indication: Intervertebral discitis
     Route: 048
     Dates: start: 202112
  4. LEVOTHYROXINE [Concomitant]
     Active Substance: LEVOTHYROXINE
  5. TAMSULOSIN HYDROCHLORIDE [Concomitant]
     Active Substance: TAMSULOSIN HYDROCHLORIDE
  6. TRANSIPEG [Concomitant]
  7. INNOHEP [Concomitant]
     Active Substance: TINZAPARIN SODIUM
  8. AMLODIPINE [Concomitant]
     Active Substance: AMLODIPINE BESYLATE
  9. RAMIPRIL [Concomitant]
     Active Substance: RAMIPRIL
  10. FUROSEMIDE [Concomitant]
     Active Substance: FUROSEMIDE
  11. ALLOPURINOL [Concomitant]
     Active Substance: ALLOPURINOL
  12. DOLIPRANE [Concomitant]
     Active Substance: ACETAMINOPHEN
  13. AMILORIDE HYDROCHLORIDE [Concomitant]
     Active Substance: AMILORIDE HYDROCHLORIDE
  14. AMIODARONE [Concomitant]
     Active Substance: AMIODARONE

REACTIONS (1)
  - Pancreatitis acute [Recovered/Resolved]

NARRATIVE: CASE EVENT DATE: 20220117
